FAERS Safety Report 11479334 (Version 1)
Quarter: 2015Q3

REPORT INFORMATION
  Report Type: Spontaneous
  Country: US (occurrence: US)
  Receive Date: 20150909
  Receipt Date: 20150909
  Transmission Date: 20151125
  Serious: No
  Sender: FDA-Public Use
  Company Number: US-JAZZ-2014-US-012409

PATIENT
  Age: 55 Year
  Sex: Female

DRUGS (2)
  1. XYREM [Suspect]
     Active Substance: SODIUM OXYBATE
     Indication: CATAPLEXY
     Dosage: 4.5 G, BID
     Route: 048
     Dates: start: 201408
  2. XYREM [Suspect]
     Active Substance: SODIUM OXYBATE
     Indication: NARCOLEPSY
     Dosage: 3.5 G, BID
     Route: 048
     Dates: start: 201407, end: 201408

REACTIONS (6)
  - Stress at work [Not Recovered/Not Resolved]
  - Flatulence [Recovered/Resolved]
  - Parasomnia [Unknown]
  - Abdominal discomfort [Recovered/Resolved]
  - Confusional arousal [Unknown]
  - Diarrhoea [Recovered/Resolved]

NARRATIVE: CASE EVENT DATE: 20140924
